FAERS Safety Report 9520981 (Version 2)
Quarter: 2013Q4

REPORT INFORMATION
  Report Type: Spontaneous
  Country: US (occurrence: US)
  Receive Date: 20130913
  Receipt Date: 20131016
  Transmission Date: 20140711
  Serious: No
  Sender: FDA-Public Use
  Company Number: US-PFIZER INC-2013260038

PATIENT
  Sex: Female

DRUGS (1)
  1. DETROL LA [Suspect]
     Indication: URINARY INCONTINENCE
     Dosage: UNK
     Dates: start: 201305

REACTIONS (3)
  - Dry throat [Unknown]
  - Dry mouth [Unknown]
  - Cough [Unknown]
